FAERS Safety Report 5775065-5 (Version None)
Quarter: 2008Q2

REPORT INFORMATION
  Report Type: 
  Country: None (occurrence: None)
  Receive Date: 20080612
  Receipt Date: 20080604
  Transmission Date: 20081010
  Serious: Yes (Hospitalization)
  Sender: FDA-Public Use
  Company Number: CLOF-1000184

PATIENT
  Age: 60 Year
  Sex: Female
  Weight: 106 kg

DRUGS (33)
  1. CLOLAR [Suspect]
     Indication: MYELOID LEUKAEMIA
     Dosage: 67 MG, QDX5, INTRAVENOUS
     Route: 042
     Dates: start: 20080418, end: 20080422
  2. BUSULFAN (BUSULFAN) UNKNOWN [Suspect]
     Indication: MYELOID LEUKAEMIA
     Dosage: 260 MG, QD, INTRAVENOUS
     Route: 042
     Dates: start: 20080419, end: 20080422
  3. PHENYTOIN (PHENYTOIN) UNKNOWN [Concomitant]
  4. PHENYTOIN SODIUM (PHENYTOIN SODIUM) UNKNOWN [Concomitant]
  5. PHENYTOIN SODIUM (PHENYTOIN SODIUM) UNKNOWN [Concomitant]
  6. PHENYTOIN SODIUM (PHENYTOIN SODIUM) UNKNOWN [Concomitant]
  7. PHENYTOIN SODIUM (PHENYTOIN SODIUM) UNKNOWN [Concomitant]
  8. PHENYTOIN SODIUM (PHENYTOIN SODIUM) UNKNOWN [Concomitant]
  9. MICAFUNGIN (MICAFUNGIN) INTRAVENOUS INFUSION [Concomitant]
  10. DEXAMETHASONE (17A-ESTRADIOL) UNKNOWN [Concomitant]
  11. DEXAMETHASONE SODIUM PHOSPHATE (DEXAMETHASONE SODIUM PHOSPHATE) INTRAV [Concomitant]
  12. ONDANSETRON HYDROCHLORIDE (ONDANSETRON HYDROCHLORIDE) INTRAVENOUS INFU [Concomitant]
  13. PANTOPRAZOLE SODIUM [Concomitant]
  14. AZTREONAM (AZTREONAM) INTRAVENOUS INFUSION [Concomitant]
  15. VANCOMYCIN (VANCOMYCIN) INTRAVENOUS INFUSION [Concomitant]
  16. URSODIOL (URSODEOXYCHOLIC ACID) UNKNOWN [Concomitant]
  17. CYCLOSPORINE (CICLOSPORIN) EYE DROPS [Concomitant]
  18. FLUCONAZOLE [Concomitant]
  19. ALLOPURINOL [Concomitant]
  20. PROCHLORPERAZINE EDISYLATE (PROCHLORPERAZINE EDISYLATE) INTRAVENOUS IN [Concomitant]
  21. PROCHLORPERAZINE MALEATE (PROCHLORPERAZINE MALEATE) UNKNOWN [Concomitant]
  22. ACETAMINOPHEN [Concomitant]
  23. DIPHENHYDRAMINE HYDROCHLORIDE (DIPHENHYDRAMINE HYDROCHLORIDE) INJECTIO [Concomitant]
  24. DIPHENHYDRAMINE HYDROCHLORIDE (DIPHENHYDRAMINE HYDROCHLORIDE) INJECTIO [Concomitant]
  25. DIPHENHYDRAMINE HYDROCHLORIDE (DIPHENHYDRAMINE HYDROCHLORIDE) INJECTIO [Concomitant]
  26. ZOLPIDEM TARTRATE [Concomitant]
  27. LORAZEPAM [Concomitant]
  28. LORAZEPAM [Concomitant]
  29. OXYCODONE (OXYCODONE, PARACETAMOL) UNKNOWN [Concomitant]
  30. CALCIUM GLUCONATE (CALCIUM GLUCONATE) INTRAVENOUS INFUSION [Concomitant]
  31. FUROSEMIDE (FUROSEMIDE) INTRAVENOUS INFUSION [Concomitant]
  32. FUROSEMIDE (FUROSEMIDE) INTRAVENOUS INFUSION [Concomitant]
  33. TACROLIMUS [Concomitant]

REACTIONS (2)
  - CLOSTRIDIUM DIFFICILE COLITIS [None]
  - GRAFT VERSUS HOST DISEASE [None]
